FAERS Safety Report 9628893 (Version 1)
Quarter: 2013Q4

REPORT INFORMATION
  Report Type: Spontaneous
  Country: IT (occurrence: IT)
  Receive Date: 20131017
  Receipt Date: 20131017
  Transmission Date: 20140711
  Serious: Yes (Other)
  Sender: FDA-Public Use
  Company Number: PHHY2013IT113577

PATIENT
  Age: 64 Year
  Sex: Female

DRUGS (3)
  1. CARBOPLATIN [Suspect]
     Indication: BREAST CANCER
     Dosage: 130 MG, ONCE/SINGLE
     Dates: start: 20130924, end: 20130924
  2. ONDANSETRON [Concomitant]
     Dates: start: 20130924, end: 20130924
  3. DEXAMETHASONE [Concomitant]
     Dates: start: 20130924, end: 20130924

REACTIONS (2)
  - Oral discomfort [Recovered/Resolved]
  - Syncope [Recovered/Resolved]
